FAERS Safety Report 8343126-2 (Version None)
Quarter: 2012Q2

REPORT INFORMATION
  Report Type: 
  Country: None (occurrence: None)
  Receive Date: 20120503
  Receipt Date: 20120418
  Transmission Date: 20120825
  Serious: Yes (Hospitalization)
  Sender: FDA-Public Use
  Company Number: TCI2012A00543

PATIENT
  Age: 69 Year
  Sex: Male

DRUGS (7)
  1. LEVEMIR [Concomitant]
  2. PLETAAL OD (CILOSTAZOL) [Concomitant]
  3. ATELEC (CILNIDIPINE) [Concomitant]
  4. PREMINENT (HYDROCHLOROTHIAZIDE, LOSARTAN POTASSIUM) [Concomitant]
  5. MIGLITOL [Concomitant]
  6. AMARYL [Concomitant]
  7. ACTOS [Suspect]
     Indication: TYPE 2 DIABETES MELLITUS
     Dosage: 15 MG (15 MG, 1 IN 1 D) PER ORAL
     Route: 048
     Dates: start: 20100628, end: 20110606

REACTIONS (6)
  - HAEMATURIA [None]
  - PROSTATE CANCER [None]
  - DIABETES MELLITUS INADEQUATE CONTROL [None]
  - RECTAL CANCER [None]
  - GLYCOSYLATED HAEMOGLOBIN INCREASED [None]
  - BLADDER TRANSITIONAL CELL CARCINOMA [None]
